FAERS Safety Report 18540704 (Version 1)
Quarter: 2020Q4

REPORT INFORMATION
  Report Type: Spontaneous
  Country: US (occurrence: US)
  Receive Date: 20201124
  Receipt Date: 20201124
  Transmission Date: 20210114
  Serious: No
  Sender: FDA-Public Use
  Company Number: None

PATIENT
  Age: 65 Year
  Sex: Male

DRUGS (1)
  1. CAPECITABINE 500MG NOVADOZ PHARMACEUTICALS [Suspect]
     Active Substance: CAPECITABINE
     Indication: NEOPLASM MALIGNANT
     Dosage: ON HOLD
     Route: 048
     Dates: start: 20200204

REACTIONS (3)
  - Ulcer [None]
  - Fluid retention [None]
  - Renal disorder [None]

NARRATIVE: CASE EVENT DATE: 20201111
